FAERS Safety Report 7126318-X (Version None)
Quarter: 2010Q4

REPORT INFORMATION
  Report Type: 
  Country: None (occurrence: None)
  Receive Date: 20101129
  Receipt Date: 20100622
  Transmission Date: 20110411
  Serious: No
  Sender: FDA-Public Use
  Company Number: A0863766A

PATIENT
  Age: 58 Year
  Sex: Male

DRUGS (6)
  1. DIGOXIN [Suspect]
     Dosage: 125MCG PER DAY
     Route: 048
     Dates: start: 20100528
  2. PLAVIX [Concomitant]
  3. METOPROLOL [Concomitant]
  4. SIMVASTATIN [Concomitant]
  5. FLOMAX [Concomitant]
  6. ASPIRIN [Concomitant]

REACTIONS (1)
  - ASTHENIA [None]
